FAERS Safety Report 7258850-2 (Version None)
Quarter: 2011Q1

REPORT INFORMATION
  Report Type: 
  Country: None (occurrence: None)
  Receive Date: 20110129
  Receipt Date: 20100512
  Transmission Date: 20110831
  Serious: No
  Sender: FDA-Public Use
  Company Number: US-ABBOTT-10P-163-0645293-00

PATIENT
  Sex: Female
  Weight: 103.06 kg

DRUGS (2)
  1. HUMIRA [Suspect]
     Dosage: HUMIRA PRE-FILLED SYRINGES
     Route: 058
     Dates: start: 20100428
  2. HUMIRA [Suspect]
     Indication: PRODUCT USED FOR UNKNOWN INDICATION
     Route: 058
     Dates: start: 20090101, end: 20100401

REACTIONS (2)
  - INJECTION SITE HAEMATOMA [None]
  - INJECTION SITE PAIN [None]
